FAERS Safety Report 5951269-3 (Version None)
Quarter: 2008Q4

REPORT INFORMATION
  Report Type: 
  Country: None (occurrence: None)
  Receive Date: 20081113
  Receipt Date: 20081105
  Transmission Date: 20090506
  Serious: Yes (Hospitalization)
  Sender: FDA-Public Use
  Company Number: GB-BRISTOL-MYERS SQUIBB COMPANY-14361844

PATIENT
  Age: 73 Year
  Sex: Female
  Weight: 71 kg

DRUGS (8)
  1. ERBITUX [Suspect]
     Indication: HEAD AND NECK CANCER
     Dosage: 61.429 DAILY.685MG:4AUG08-LOADING DOSE. 430 MG FROM 11-AUG-08 TO 22-SEP-08.
     Route: 041
     Dates: start: 20080804, end: 20080922
  2. RADIOTHERAPY [Suspect]
     Indication: HEAD AND NECK CANCER
     Dates: start: 20080811, end: 20080926
  3. ACETAMINOPHEN [Concomitant]
     Route: 048
     Dates: start: 20080801
  4. DICLOFENAC SODIUM [Concomitant]
     Route: 048
     Dates: start: 20080801
  5. AMOXICILLIN + CLAVULANATE POTASSIUM [Concomitant]
     Route: 048
     Dates: start: 20080819, end: 20080826
  6. CHLORPHENAMINE [Concomitant]
     Route: 048
     Dates: start: 20080929
  7. TRIMETHOPRIM [Concomitant]
     Route: 048
     Dates: start: 20081003, end: 20081010
  8. FLUCONAZOLE [Concomitant]
     Route: 048
     Dates: start: 20081012

REACTIONS (9)
  - DERMATITIS ACNEIFORM [None]
  - ERYTHEMA [None]
  - LOCALISED INFECTION [None]
  - PAIN OF SKIN [None]
  - PALMAR-PLANTAR ERYTHRODYSAESTHESIA SYNDROME [None]
  - RASH [None]
  - RASH PUSTULAR [None]
  - SKIN EXFOLIATION [None]
  - SKIN REACTION [None]
